FAERS Safety Report 8345177-0 (Version None)
Quarter: 2012Q2

REPORT INFORMATION
  Report Type: 
  Country: None (occurrence: None)
  Receive Date: 20120504
  Receipt Date: 20120425
  Transmission Date: 20120825
  Serious: Yes (Life-Threatening, Hospitalization)
  Sender: FDA-Public Use
  Company Number: 1270951

PATIENT
  Age: 64 Year
  Sex: Female
  Weight: 69.1 kg

DRUGS (3)
  1. CYCLOPHOSPHAMIDE [Suspect]
     Indication: CHRONIC LYMPHOCYTIC LEUKAEMIA
     Dosage: 1010 MG, UNKNOWN
     Dates: start: 20120326, end: 20120326
  2. RITUXIMAB [Suspect]
     Indication: CHRONIC LYMPHOCYTIC LEUKAEMIA
     Dosage: 1300 MG, UNKNOWN
     Dates: start: 20120326, end: 20120330
  3. PENTOSTATIN [Suspect]
     Indication: CHRONIC LYMPHOCYTIC LEUKAEMIA
     Dosage: 7 MG, UNKNOWN
     Dates: start: 20120326, end: 20120326

REACTIONS (6)
  - DYSPHAGIA [None]
  - MUCOSAL INFLAMMATION [None]
  - LIP HAEMORRHAGE [None]
  - FACE OEDEMA [None]
  - CHAPPED LIPS [None]
  - DRUG INEFFECTIVE [None]
